FAERS Safety Report 15524458 (Version 1)
Quarter: 2018Q4

REPORT INFORMATION
  Report Type: Report from Study
  Country: IT (occurrence: IT)
  Receive Date: 20181019
  Receipt Date: 20181019
  Transmission Date: 20190205
  Serious: Yes (Other)
  Sender: FDA-Public Use
  Company Number: IT-BAYER-2018-185551

PATIENT
  Age: 21 Year
  Sex: Female

DRUGS (1)
  1. JAYDESS 13,5 MG SISTEMA A RILASCIO INTRAUTERINO [Suspect]
     Active Substance: LEVONORGESTREL
     Indication: CONTRACEPTION
     Dosage: 14 MCG/24HR, CONT
     Route: 015

REACTIONS (3)
  - Hyperpyrexia [Recovering/Resolving]
  - Uterine perforation [Recovering/Resolving]
  - Malaise [Recovering/Resolving]

NARRATIVE: CASE EVENT DATE: 20180923
